FAERS Safety Report 8552589-9 (Version None)
Quarter: 2012Q3

REPORT INFORMATION
  Report Type: 
  Country: None (occurrence: None)
  Receive Date: 20120731
  Receipt Date: 20120706
  Transmission Date: 20120928
  Serious: No
  Sender: FDA-Public Use
  Company Number: US-ASTRAZENECA-2012SE46858

PATIENT
  Sex: Female

DRUGS (3)
  1. CLONAZEPAM [Concomitant]
  2. SEROQUEL [Suspect]
     Dosage: TOOK AN OLD BOTTLE FROM 2007
     Route: 048
  3. SEROQUEL [Suspect]
     Dosage: GENERIC
     Route: 048

REACTIONS (5)
  - ASTHENIA [None]
  - DRUG INEFFECTIVE [None]
  - INSOMNIA [None]
  - NERVOUSNESS [None]
  - EXPIRED DRUG ADMINISTERED [None]
